FAERS Safety Report 8884766 (Version 1)
Quarter: 2012Q4

REPORT INFORMATION
  Report Type: 
  Country: CA (occurrence: CA)
  Receive Date: 20121102
  Receipt Date: 20121102
  Transmission Date: 20130627
  Serious: Yes (Hospitalization, Other)
  Sender: FDA-Public Use
  Company Number: CA-PFIZER INC-2012269562

PATIENT
  Age: 59 Year
  Sex: Female

DRUGS (1)
  1. CELEBREX [Suspect]
     Dosage: 200 mg, 1x/day
     Dates: start: 20040901, end: 20060618

REACTIONS (5)
  - Pulmonary embolism [Unknown]
  - Pulmonary hypertension [Unknown]
  - Embolism [Unknown]
  - Dyspnoea [Unknown]
  - Joint swelling [Unknown]
